FAERS Safety Report 4423286-6 (Version None)
Quarter: 2004Q3

REPORT INFORMATION
  Report Type: 
  Country: None (occurrence: None)
  Receive Date: 20040811
  Receipt Date: 20040730
  Transmission Date: 20050211
  Serious: Yes (Other)
  Sender: FDA-Public Use
  Company Number: US-GLAXOSMITHKLINE-A0520384A

PATIENT
  Age: 70 Year
  Sex: Female

DRUGS (13)
  1. PAXIL [Suspect]
     Indication: DEPRESSION
  2. PAROXETINE HYDROCHLORIDE [Suspect]
     Indication: DEPRESSION
     Dosage: 50MG PER DAY
     Route: 048
     Dates: start: 20040525, end: 20040729
  3. CARBAMAZEPINE [Concomitant]
  4. ACETAMINOPHEN [Concomitant]
  5. RANITIDINE [Concomitant]
  6. ESTRADIOL [Concomitant]
  7. HYDROCHLOROTHIAZIDE [Concomitant]
  8. LIPITOR [Concomitant]
  9. LISINOPRIL [Concomitant]
  10. GLUCOSAMINE [Concomitant]
  11. BENADRYL [Concomitant]
  12. CHONDROITIN [Concomitant]
  13. ADVIL [Concomitant]
     Indication: ARTHRITIS

REACTIONS (4)
  - DRUG INEFFECTIVE [None]
  - MALABSORPTION [None]
  - PHARMACEUTICAL PRODUCT COMPLAINT [None]
  - SUICIDAL IDEATION [None]
